FAERS Safety Report 10138923 (Version 3)
Quarter: 2014Q2

REPORT INFORMATION
  Report Type: Spontaneous
  Country: US (occurrence: US)
  Receive Date: 20140429
  Receipt Date: 20140610
  Transmission Date: 20141212
  Serious: No
  Sender: FDA-Public Use
  Company Number: US-009507513-1404USA010531

PATIENT
  Sex: Female
  Weight: 61.68 kg

DRUGS (8)
  1. NEXPLANON [Suspect]
     Dosage: 1 ROD, FREQUENCY UNSPECIFIED
     Route: 059
     Dates: start: 201305
  2. NEXPLANON [Suspect]
     Dosage: UNK
  3. ALBUTEROL SULFATE [Concomitant]
     Dosage: UNK
     Dates: start: 20131231
  4. AMITRIPTYLINE HYDROCHLORIDE [Concomitant]
     Dosage: 25 MG DAILY
     Route: 048
     Dates: start: 20140514
  5. MELOXICAM [Concomitant]
     Dosage: 15 MG DAILY
     Route: 048
     Dates: start: 20140424
  6. TRIAMCINOLONE ACETONIDE [Concomitant]
     Dosage: 0.2 % DAILY
     Route: 061
     Dates: start: 20140403
  7. NORCO [Concomitant]
     Dosage: 3/325 MG DAILY
     Route: 048
     Dates: start: 20140403
  8. FLOVENT HFA [Concomitant]
     Dosage: 110 MCG DAILY
     Route: 048
     Dates: start: 20131203

REACTIONS (3)
  - Meniscus injury [Unknown]
  - Device difficult to use [Not Recovered/Not Resolved]
  - No adverse event [Unknown]
